FAERS Safety Report 8126471-5 (Version None)
Quarter: 2012Q1

REPORT INFORMATION
  Report Type: 
  Country: None (occurrence: None)
  Receive Date: 20120209
  Receipt Date: 20120206
  Transmission Date: 20120608
  Serious: Yes (Death, Hospitalization, Other)
  Sender: FDA-Public Use
  Company Number: BE-ASTRAZENECA-2012SE07665

PATIENT
  Age: 84 Year
  Sex: Male

DRUGS (8)
  1. CRESTOR [Suspect]
     Route: 048
     Dates: start: 20060101
  2. ZESTRIL [Concomitant]
  3. OMEPRAZOLE [Concomitant]
     Indication: GASTROOESOPHAGEAL REFLUX DISEASE
     Dates: start: 20101001
  4. EZETROLE [Concomitant]
  5. LOPRESSOR [Concomitant]
     Dosage: TWO TIMES A DAY
  6. PROLOPA [Concomitant]
     Indication: RESTLESS LEGS SYNDROME
     Dosage: 125 HBS, TWO TIMES A DAY
  7. CARDIO-ASPIRINE [Concomitant]
     Indication: CARDIOMYOPATHY
     Dosage: DAILY
  8. CRESTOR [Suspect]
     Indication: CARDIOMYOPATHY
     Route: 048
     Dates: end: 20060101

REACTIONS (4)
  - PHARYNGITIS [None]
  - PULMONARY FIBROSIS [None]
  - TRACHEITIS [None]
  - BRONCHITIS [None]
